FAERS Safety Report 8393160-1 (Version None)
Quarter: 2012Q2

REPORT INFORMATION
  Report Type: 
  Country: None (occurrence: None)
  Receive Date: 20120529
  Receipt Date: 20120502
  Transmission Date: 20120825
  Serious: No
  Sender: FDA-Public Use
  Company Number: US-ABBOTT-12P-163-0928536-00

PATIENT
  Sex: Male
  Weight: 95.794 kg

DRUGS (2)
  1. TYLENOL [Concomitant]
     Indication: PRODUCT USED FOR UNKNOWN INDICATION
  2. ANDROGEL [Suspect]
     Indication: BLOOD TESTOSTERONE DECREASED
     Dates: start: 20120301, end: 20120419

REACTIONS (2)
  - HEADACHE [None]
  - LIQUID PRODUCT PHYSICAL ISSUE [None]
